FAERS Safety Report 18947110 (Version 2)
Quarter: 2021Q1

REPORT INFORMATION
  Report Type: Spontaneous
  Country: PT (occurrence: PT)
  Receive Date: 20210226
  Receipt Date: 20210301
  Transmission Date: 20210420
  Serious: Yes (Death, Other)
  Sender: FDA-Public Use
  Company Number: PT-PFIZER INC-2021083340

PATIENT
  Age: 77 Year
  Sex: Female

DRUGS (5)
  1. PREGABALIN. [Suspect]
     Active Substance: PREGABALIN
     Indication: COMPLEX REGIONAL PAIN SYNDROME
     Dosage: 150 MG, 1X/DAY (75 MILLIGRAM, 2X PER DAY)
  2. CAPSAICIN. [Suspect]
     Active Substance: CAPSAICIN
     Indication: COMPLEX REGIONAL PAIN SYNDROME
     Dosage: UNK
     Route: 061
  3. NIMESULIDE [Suspect]
     Active Substance: NIMESULIDE
     Indication: OEDEMA
  4. PREGABALIN. [Suspect]
     Active Substance: PREGABALIN
     Indication: OEDEMA
     Dosage: 400 MG, 1X/DAY (ONCE A DAY)
  5. NIMESULIDE [Suspect]
     Active Substance: NIMESULIDE
     Indication: COMPLEX REGIONAL PAIN SYNDROME
     Dosage: 200 MG, 1X/DAY (100 MILLIGRAM, TWICE A DAY)

REACTIONS (11)
  - Insomnia [Unknown]
  - Pain [Recovering/Resolving]
  - Depressed mood [Unknown]
  - Oedema [Unknown]
  - Cyanosis [Unknown]
  - Off label use [Unknown]
  - Erythema [Unknown]
  - Feeling hot [Unknown]
  - Loss of personal independence in daily activities [Unknown]
  - Death [Fatal]
  - Physical deconditioning [Unknown]
